FAERS Safety Report 19272410 (Version 1)
Quarter: 2021Q2

REPORT INFORMATION
  Report Type: Spontaneous
  Country: US (occurrence: US)
  Receive Date: 20210518
  Receipt Date: 20210518
  Transmission Date: 20210717
  Serious: No
  Sender: FDA-Public Use
  Company Number: US-THERAPEUTICSMD-2021TMD00740

PATIENT
  Age: 53 Year
  Sex: Female
  Weight: 68.03 kg

DRUGS (3)
  1. NEXIUM [Concomitant]
     Active Substance: ESOMEPRAZOLE MAGNESIUM
  2. UNSPECIFIED VITAMINS [Concomitant]
     Active Substance: VITAMINS
  3. BIJUVA [Suspect]
     Active Substance: ESTRADIOL\PROGESTERONE
     Indication: HOT FLUSH
     Dosage: 1 CAPSULES, 1X/DAY
     Route: 048
     Dates: start: 202008

REACTIONS (5)
  - Malaise [Recovered/Resolved]
  - Chills [Recovered/Resolved]
  - Product dose omission issue [Recovered/Resolved]
  - Body temperature fluctuation [Recovered/Resolved]
  - Fatigue [Recovered/Resolved]

NARRATIVE: CASE EVENT DATE: 20210130
